FAERS Safety Report 13877180 (Version 1)
Quarter: 2017Q3

REPORT INFORMATION
  Report Type: Spontaneous
  Country: US (occurrence: US)
  Receive Date: 20170814
  Receipt Date: 20170814
  Transmission Date: 20171127
  Serious: Yes (Disabling)
  Sender: FDA-Public Use
  Company Number: None

PATIENT
  Age: 42 Year
  Sex: Female
  Weight: 58.5 kg

DRUGS (13)
  1. MONTELUKAST [Concomitant]
     Active Substance: MONTELUKAST SODIUM
  2. CLEMASTINE FUMARATE. [Concomitant]
     Active Substance: CLEMASTINE FUMARATE
  3. NADOLOL. [Concomitant]
     Active Substance: NADOLOL
  4. METHYLPHENIDATE ER [Concomitant]
     Active Substance: METHYLPHENIDATE
  5. ATORVASTATIN [Concomitant]
     Active Substance: ATORVASTATIN
  6. IRON EXTENDED RELEASE [Concomitant]
  7. WOMEN^S GUMMY VITAMIN [Concomitant]
  8. METHYLPHENIDATE. [Concomitant]
     Active Substance: METHYLPHENIDATE
  9. BUPROPION SR [Concomitant]
     Active Substance: BUPROPION HYDROCHLORIDE
  10. BOTOX [Suspect]
     Active Substance: ONABOTULINUMTOXINA
     Indication: MIGRAINE
     Dates: start: 20131010, end: 20170814
  11. OMEGA 3 FATTY ACIDS (FISH OIL) [Concomitant]
  12. VITAMIN D [Concomitant]
     Active Substance: CHOLECALCIFEROL
  13. VITAMIN FOR HAIR/SKIN/NAILS GUMMY [Concomitant]

REACTIONS (13)
  - Treatment failure [None]
  - Fatigue [None]
  - Attention deficit/hyperactivity disorder [None]
  - Condition aggravated [None]
  - Stress [None]
  - Memory impairment [None]
  - Muscular weakness [None]
  - Aphasia [None]
  - Vision blurred [None]
  - Death of relative [None]
  - Disturbance in attention [None]
  - Migraine [None]
  - Paraesthesia [None]

NARRATIVE: CASE EVENT DATE: 20170720
